FAERS Safety Report 9500213 (Version 3)
Quarter: 2013Q4

REPORT INFORMATION
  Report Type: Spontaneous
  Country: FR (occurrence: FR)
  Receive Date: 20130905
  Receipt Date: 20131003
  Transmission Date: 20140711
  Serious: Yes (Life-Threatening)
  Sender: FDA-Public Use
  Company Number: FR-ASTRAZENECA-2013SE67065

PATIENT
  Age: 26580 Day
  Sex: Male

DRUGS (22)
  1. MERONEM [Suspect]
     Indication: URINARY TRACT INFECTION
     Route: 042
     Dates: start: 20130524, end: 20130613
  2. TORISEL [Suspect]
     Indication: RENAL CANCER
     Route: 041
     Dates: start: 20130531, end: 20130531
  3. ADVAGRAF [Suspect]
     Route: 048
  4. ZOVIRAX [Concomitant]
     Indication: MUCOSAL INFLAMMATION
     Route: 065
     Dates: start: 20130614
  5. AMIKACINE [Concomitant]
     Route: 065
     Dates: start: 20130523, end: 20130523
  6. AMLOR [Concomitant]
     Dosage: LONG LASTING TREATMENT
  7. RAMIPRIL [Concomitant]
     Dosage: LONG LASTING TREATMENT
  8. CARDENSIEL [Concomitant]
     Dosage: LONG LASTING TREATMENT
  9. KARDEGIC [Concomitant]
     Dosage: LONG LASTING TREATMENT
  10. INEXIUM [Concomitant]
     Dosage: LONG LASTING TREATMENT
  11. ELISOR [Concomitant]
     Dosage: LONG LASTING TREATMENT
  12. UROREC [Concomitant]
     Dosage: LONG LASTING TREATMENT
  13. VENTOLINE [Concomitant]
     Dosage: LONG LASTING TREATMENT
  14. MYFORTIC [Concomitant]
     Dosage: LONG LASTING TREATMENT
     Dates: end: 20130529
  15. TAVANIC [Concomitant]
     Dates: start: 20130513, end: 20130515
  16. ROCEPHINE [Concomitant]
     Dates: start: 20130520, end: 20130523
  17. LOXEN [Concomitant]
     Dates: start: 20130521
  18. FUROSEMIDE [Concomitant]
     Dates: start: 20130601, end: 20130603
  19. FUROSEMIDE [Concomitant]
     Dates: start: 20130606, end: 20130606
  20. ACUPAN [Concomitant]
     Dates: start: 20130516, end: 20130606
  21. INVANZ [Concomitant]
     Dates: start: 20130523, end: 20130524
  22. CORTICOIDS [Concomitant]

REACTIONS (1)
  - Thrombotic microangiopathy [Unknown]
